FAERS Safety Report 7887393-8 (Version None)
Quarter: 2011Q4

REPORT INFORMATION
  Report Type: 
  Country: None (occurrence: None)
  Receive Date: 20111102
  Receipt Date: 20110719
  Transmission Date: 20120403
  Serious: No
  Sender: FDA-Public Use
  Company Number: US-AMGEN-USASP2011036636

PATIENT
  Age: 56 Year
  Sex: Female
  Weight: 62.585 kg

DRUGS (10)
  1. ENBREL [Suspect]
     Indication: PRODUCT USED FOR UNKNOWN INDICATION
     Dosage: 50 MG, QWK
  2. ESTRADIOL [Concomitant]
     Dosage: 0.05 MG, UNK
  3. ZYRTEC [Concomitant]
     Dosage: 10 MG, UNK
  4. FLONASE [Concomitant]
  5. LYRICA [Concomitant]
     Dosage: 25 MG, UNK
  6. MULTIVITAMIN                       /00097801/ [Concomitant]
  7. FLAXSEED OIL [Concomitant]
  8. VITAMIN D [Concomitant]
  9. CELEBREX [Concomitant]
     Dosage: 100 MG, UNK
  10. TYLENOL (CAPLET) [Concomitant]
     Dosage: 500 MG, UNK

REACTIONS (1)
  - INJECTION SITE HAEMATOMA [None]
